FAERS Safety Report 18608108 (Version 1)
Quarter: 2020Q4

REPORT INFORMATION
  Report Type: Report from Study
  Country: None (occurrence: US)
  Receive Date: 20201211
  Receipt Date: 20201211
  Transmission Date: 20210114
  Serious: Yes (Death)
  Sender: FDA-Public Use
  Company Number: US-ABBVIE-20K-163-3234388-00

PATIENT
  Age: 70 Year
  Sex: Male

DRUGS (2)
  1. RITUXAN [Suspect]
     Active Substance: RITUXIMAB
     Indication: NON-HODGKIN^S LYMPHOMA
     Route: 065
  2. VENCLEXTA [Suspect]
     Active Substance: VENETOCLAX
     Indication: NON-HODGKIN^S LYMPHOMA
     Dosage: 400MG DAILY, TAKE 4 TABS DAILY
     Route: 048
     Dates: start: 20191211

REACTIONS (4)
  - Off label use [Unknown]
  - Neutrophil count decreased [Unknown]
  - White blood cell count decreased [Unknown]
  - Death [Fatal]

NARRATIVE: CASE EVENT DATE: 201912
